FAERS Safety Report 5695572-3 (Version None)
Quarter: 2008Q2

REPORT INFORMATION
  Report Type: 
  Country: None (occurrence: None)
  Receive Date: 20080407
  Receipt Date: 20080312
  Transmission Date: 20081010
  Serious: Yes (Hospitalization, Other)
  Sender: FDA-Public Use
  Company Number: US-BAYER-200815400GPV

PATIENT
  Age: 16 Year
  Sex: Male
  Weight: 49 kg

DRUGS (12)
  1. CIPROFLOXACIN [Suspect]
     Indication: PERIRECTAL ABSCESS
     Dosage: TOTAL DAILY DOSE: 800 MG
     Route: 042
  2. METRONIDAZOLE HCL [Concomitant]
     Indication: CROHN'S DISEASE
     Route: 042
  3. METRONIDAZOLE HCL [Concomitant]
     Route: 048
  4. METHYLPREDNISOLONE [Concomitant]
     Indication: CROHN'S DISEASE
     Dosage: AS USED: 40 MG
     Route: 042
  5. METHYLPREDNISOLONE [Concomitant]
     Dosage: TOTAL DAILY DOSE: 40 MG
     Route: 065
  6. MESALAMINE [Concomitant]
     Indication: CROHN'S DISEASE
     Route: 048
  7. MESALAMINE [Concomitant]
     Dosage: TOTAL DAILY DOSE: 2 G
     Route: 048
  8. AZATHIOPRINE [Concomitant]
     Indication: CROHN'S DISEASE
     Route: 048
  9. RANITIDINE [Concomitant]
     Indication: CROHN'S DISEASE
     Dosage: TOTAL DAILY DOSE: 300 MG
     Route: 048
  10. LANSOPRAZOLE [Concomitant]
     Indication: DRUG USE FOR UNKNOWN INDICATION
     Dosage: TOTAL DAILY DOSE: 30 MG
     Route: 048
  11. FERROUS SULFATE TAB [Concomitant]
     Indication: DRUG USE FOR UNKNOWN INDICATION
     Route: 048
  12. INFLIXIMAB [Concomitant]
     Indication: CROHN'S DISEASE
     Route: 042

REACTIONS (2)
  - BRADYCARDIA [None]
  - ELECTROCARDIOGRAM QT PROLONGED [None]
